FAERS Safety Report 6052527-7 (Version None)
Quarter: 2009Q1

REPORT INFORMATION
  Report Type: 
  Country: None (occurrence: None)
  Receive Date: 20090121
  Receipt Date: 20090105
  Transmission Date: 20090719
  Serious: Yes (Other)
  Sender: FDA-Public Use
  Company Number: 1-17225352

PATIENT
  Age: 15 Year
  Sex: Male
  Weight: 54.4316 kg

DRUGS (2)
  1. SOLODYN [Suspect]
     Indication: ACNE
     Dosage: ONE TABLET DAILY ORALLY
     Route: 048
     Dates: start: 20080601, end: 20090103
  2. RETIN A (TRETINOIN TOPICAL) [Concomitant]

REACTIONS (1)
  - CONVULSION [None]
